FAERS Safety Report 4554283-8 (Version None)
Quarter: 2005Q1

REPORT INFORMATION
  Report Type: 
  Country: None (occurrence: None)
  Receive Date: 20050118
  Receipt Date: 20040227
  Transmission Date: 20050727
  Serious: Yes (Hospitalization)
  Sender: FDA-Public Use
  Company Number: US-GLAXOSMITHKLINE-A0502608A

PATIENT
  Age: 17 Year
  Sex: Female

DRUGS (1)
  1. PAXIL [Suspect]
     Indication: DEPRESSION
     Dosage: 20MG PER DAY
     Route: 048
     Dates: start: 20000901, end: 20010501

REACTIONS (9)
  - DEPRESSIVE SYMPTOM [None]
  - DRUG WITHDRAWAL SYNDROME [None]
  - FATIGUE [None]
  - HEADACHE [None]
  - HOSPITALISATION [None]
  - PRURITUS [None]
  - RASH [None]
  - SELF INJURIOUS BEHAVIOUR [None]
  - WEIGHT INCREASED [None]
